FAERS Safety Report 7995994-1 (Version None)
Quarter: 2011Q4

REPORT INFORMATION
  Report Type: 
  Country: None (occurrence: None)
  Receive Date: 20111220
  Receipt Date: 20111209
  Transmission Date: 20120403
  Serious: Yes (Hospitalization)
  Sender: FDA-Public Use
  Company Number: PHEH2011US008828

PATIENT
  Sex: Male

DRUGS (1)
  1. EXJADE [Suspect]
     Dosage: 3000 MG, QD
     Dates: start: 20111103

REACTIONS (9)
  - DEVICE RELATED INFECTION [None]
  - DELUSION [None]
  - SOMNOLENCE [None]
  - PYREXIA [None]
  - PLATELET COUNT DECREASED [None]
  - NAUSEA [None]
  - VOMITING [None]
  - NASAL CONGESTION [None]
  - FREQUENT BOWEL MOVEMENTS [None]
